FAERS Safety Report 24443981 (Version 2)
Quarter: 2024Q4

REPORT INFORMATION
  Report Type: Report from Study
  Country: CA (occurrence: CA)
  Receive Date: 20241016
  Receipt Date: 20241017
  Transmission Date: 20250115
  Serious: No
  Sender: ROCHE
  Company Number: CA-ROCHE-2595175

PATIENT
  Sex: Male

DRUGS (6)
  1. RITUXAN [Suspect]
     Active Substance: RITUXIMAB
     Indication: Autoimmune pancreatitis
     Dosage: DAY 1, DAY 15. NO PIRS AVAILABLE. DOSAGE BASED ON ENROLLMENT, ONGOING
     Route: 041
     Dates: start: 20191113
  2. APIDRA [Concomitant]
     Active Substance: INSULIN GLULISINE
  3. LANTUS [Concomitant]
     Active Substance: INSULIN GLARGINE
  4. METFORMIN [Concomitant]
     Active Substance: METFORMIN HYDROCHLORIDE
     Dosage: DRUG DOSE FIRST ADMINISTERED IS 1000 MG MILLIGRAM(S)
  5. PREDNISONE [Concomitant]
     Active Substance: PREDNISONE
  6. BENSERAZIDE\LEVODOPA [Concomitant]
     Active Substance: BENSERAZIDE\LEVODOPA
     Dosage: DRUG DOSE FIRST ADMINISTERED IS 100/25 MG MILLIGRAM(S)

REACTIONS (2)
  - Off label use [Unknown]
  - No adverse event [Unknown]
